FAERS Safety Report 4505445-7 (Version None)
Quarter: 2004Q4

REPORT INFORMATION
  Report Type: 
  Country: None (occurrence: None)
  Receive Date: 20041118
  Receipt Date: 20041118
  Transmission Date: 20050328
  Serious: Yes (Hospitalization)
  Sender: FDA-Public Use
  Company Number: None

PATIENT
  Sex: Male
  Weight: 27.2158 kg

DRUGS (1)
  1. CLONIDINE [Suspect]
     Indication: ATTENTION DEFICIT/HYPERACTIVITY DISORDER
     Dosage: 0.1 MG Q3DAYS TRANSDERMAL
     Route: 062
     Dates: start: 20041001, end: 20041030

REACTIONS (3)
  - ASTHENIA [None]
  - BRADYCARDIA [None]
  - MALAISE [None]
